FAERS Safety Report 9206302 (Version 3)
Quarter: 2013Q2

REPORT INFORMATION
  Report Type: Spontaneous
  Country: GB (occurrence: GB)
  Receive Date: 20130403
  Receipt Date: 20130422
  Transmission Date: 20140414
  Serious: Yes (Other)
  Sender: FDA-Public Use
  Company Number: PHFR2010GB04636

PATIENT
  Age: 50 Year
  Sex: Female

DRUGS (8)
  1. CLOZARIL [Suspect]
     Indication: SCHIZOPHRENIA
     Dosage: 300 MG
     Route: 048
     Dates: start: 20100927, end: 20101111
  2. CLOZARIL [Suspect]
     Dosage: UNK
     Route: 048
     Dates: start: 20130307
  3. CLOZARIL [Suspect]
     Dosage: 100 MG, BID
     Route: 048
     Dates: start: 20130311, end: 20130403
  4. LAMOTRIGINE [Concomitant]
     Dosage: 150 MG, QD
     Route: 048
  5. METFORMIN [Concomitant]
     Dosage: 850 MG, TDS
     Route: 048
  6. SIMVASTATIN [Concomitant]
     Dosage: 10 MG, ON
     Route: 048
  7. LEVOTHYROXINE [Concomitant]
     Dosage: 50 MG, QD
     Route: 048
  8. QUETIAPINE [Concomitant]
     Dosage: 200 MG OM + 400 MG ON

REACTIONS (9)
  - Renal impairment [Recovered/Resolved]
  - Blood creatinine increased [Unknown]
  - Blood urea increased [Unknown]
  - Liver function test abnormal [Recovered/Resolved]
  - Alanine aminotransferase increased [Unknown]
  - Blood alkaline phosphatase increased [Recovered/Resolved]
  - Antipsychotic drug level increased [Unknown]
  - Pyrexia [Unknown]
  - Platelet count increased [Recovered/Resolved]
